FAERS Safety Report 7817013-X (Version None)
Quarter: 2011Q4

REPORT INFORMATION
  Report Type: 
  Country: None (occurrence: None)
  Receive Date: 20111017
  Receipt Date: 20111010
  Transmission Date: 20120403
  Serious: Yes (Other)
  Sender: FDA-Public Use
  Company Number: US-UCBSA-8042962

PATIENT
  Age: 32 Year
  Sex: Female

DRUGS (4)
  1. FOLIC ACID [Concomitant]
     Indication: PREGNANCY
     Route: 048
     Dates: start: 20090114
  2. KEPPRA XR [Suspect]
     Indication: EPILEPSY
     Route: 048
     Dates: start: 20081001
  3. VITAMIN AND MINERAL PRENATAL SUPPLEMENT W/ FOLIC ACID CAP [Concomitant]
     Indication: PREGNANCY
     Dosage: DOSE FREQ.: DAILY
     Route: 048
     Dates: start: 20090114
  4. SYNTHROID [Concomitant]
     Indication: THYROIDECTOMY
     Dosage: DOSE FLUCTUATES
     Route: 048
     Dates: start: 20090403

REACTIONS (3)
  - EXPOSURE DURING BREAST FEEDING [None]
  - PREGNANCY [None]
  - THYROID CANCER [None]
